FAERS Safety Report 13447735 (Version 4)
Quarter: 2018Q1

REPORT INFORMATION
  Report Type: Spontaneous
  Country: US (occurrence: US)
  Receive Date: 20170417
  Receipt Date: 20180119
  Transmission Date: 20180508
  Serious: No
  Sender: FDA-Public Use
  Company Number: US-GLAXOSMITHKLINE-US2017GSK054853

PATIENT
  Age: 70 Year
  Sex: Female

DRUGS (7)
  1. BREO ELLIPTA [Suspect]
     Active Substance: FLUTICASONE FUROATE\VILANTEROL TRIFENATATE
     Indication: ASTHMA
     Dosage: UNK
  2. SYNTHROID [Suspect]
     Active Substance: LEVOTHYROXINE SODIUM
  3. MONTELUKAST [Suspect]
     Active Substance: MONTELUKAST SODIUM
  4. BREO ELLIPTA [Suspect]
     Active Substance: FLUTICASONE FUROATE\VILANTEROL TRIFENATATE
     Indication: DYSPNOEA
     Dosage: 1 PUFF(S), QD
     Dates: start: 20161220
  5. ATIVAN [Concomitant]
     Active Substance: LORAZEPAM
  6. ATENOLOL. [Concomitant]
     Active Substance: ATENOLOL
  7. OXYCODONE [Suspect]
     Active Substance: OXYCODONE

REACTIONS (7)
  - Dizziness [Unknown]
  - Blood pressure increased [Unknown]
  - Chest discomfort [Unknown]
  - Malaise [Unknown]
  - Oral papule [Not Recovered/Not Resolved]
  - Headache [Unknown]
  - Rosacea [Not Recovered/Not Resolved]

NARRATIVE: CASE EVENT DATE: 201710
